FAERS Safety Report 18626274 (Version 1)
Quarter: 2020Q4

REPORT INFORMATION
  Report Type: Spontaneous
  Country: MY (occurrence: MY)
  Receive Date: 20201217
  Receipt Date: 20201217
  Transmission Date: 20210114
  Serious: Yes (Other)
  Sender: FDA-Public Use
  Company Number: MY-ROCHE-2734145

PATIENT
  Age: 85 Year
  Sex: Male

DRUGS (1)
  1. METALYSE [Suspect]
     Active Substance: TENECTEPLASE
     Indication: MYOCARDIAL INFARCTION
     Dosage: 1
     Route: 042

REACTIONS (3)
  - Tongue pruritus [Recovering/Resolving]
  - Angioedema [Recovering/Resolving]
  - Dysphagia [Recovering/Resolving]
